FAERS Safety Report 10793347 (Version 1)
Quarter: 2015Q1

REPORT INFORMATION
  Report Type: Spontaneous
  Country: US (occurrence: US)
  Receive Date: 20150213
  Receipt Date: 20150213
  Transmission Date: 20150721
  Serious: Yes (Hospitalization)
  Sender: FDA-Public Use
  Company Number: US-ASTRAZENECA-2015SE13065

PATIENT
  Sex: Male

DRUGS (1)
  1. SEROQUEL [Suspect]
     Active Substance: QUETIAPINE FUMARATE
     Indication: MENTAL DISORDER
     Route: 048

REACTIONS (1)
  - Pneumonia aspiration [Unknown]
